FAERS Safety Report 21408112 (Version 2)
Quarter: 2022Q4

REPORT INFORMATION
  Report Type: Spontaneous
  Country: US (occurrence: US)
  Receive Date: 20221004
  Receipt Date: 20221110
  Transmission Date: 20230113
  Serious: Yes (Other)
  Sender: FDA-Public Use
  Company Number: US-GLAUKOS-36161

PATIENT
  Age: 43 Year
  Sex: Male

DRUGS (4)
  1. RIBOFLAVIN 5^-PHOSPHATE SODIUM [Suspect]
     Active Substance: RIBOFLAVIN 5^-PHOSPHATE SODIUM
     Indication: Product used for unknown indication
     Route: 047
     Dates: start: 20220822, end: 20220822
  2. SYSTANE (HYPROMELLOSE 2910 (4000 MPA.S)) [Concomitant]
     Active Substance: HYPROMELLOSE 2910 (4000 MPA.S)
     Indication: Product used for unknown indication
  3. LEXAPRO [Concomitant]
     Active Substance: ESCITALOPRAM OXALATE
     Indication: Product used for unknown indication
  4. NURTEC ODT [Concomitant]
     Active Substance: RIMEGEPANT SULFATE
     Indication: Product used for unknown indication

REACTIONS (19)
  - Ulcerative keratitis [Recovered/Resolved]
  - Keratoplasty [Recovered/Resolved]
  - Keratitis interstitial [Unknown]
  - Corneal disorder [Unknown]
  - Persistent corneal epithelial defect [Unknown]
  - Corneal oedema [Unknown]
  - Eye swelling [Recovering/Resolving]
  - Eye irritation [Unknown]
  - Impaired driving ability [Unknown]
  - Eye pain [Unknown]
  - Vision blurred [Unknown]
  - Foreign body sensation in eyes [Unknown]
  - Visual impairment [Recovering/Resolving]
  - Photophobia [Unknown]
  - Lacrimation increased [Unknown]
  - Glare [Unknown]
  - Dry eye [Recovering/Resolving]
  - Eye pruritus [Recovering/Resolving]
  - Eye pain [Recovering/Resolving]

NARRATIVE: CASE EVENT DATE: 20220101
